FAERS Safety Report 8103967-3 (Version None)
Quarter: 2012Q1

REPORT INFORMATION
  Report Type: 
  Country: None (occurrence: None)
  Receive Date: 20120201
  Receipt Date: 20120125
  Transmission Date: 20120608
  Serious: Yes (Other)
  Sender: FDA-Public Use
  Company Number: FR-JNJFOC-20091207651

PATIENT
  Sex: Female
  Weight: 60 kg

DRUGS (8)
  1. FOLIC ACID [Concomitant]
  2. TOPIRAMATE [Suspect]
     Indication: MIGRAINE PROPHYLAXIS
     Route: 048
  3. TOPIRAMATE [Suspect]
     Route: 048
     Dates: start: 19980101
  4. AMOXICILLIN TRIHYDRATE [Concomitant]
     Dosage: FOR 2 WEEKS BEFORE DELIVERY
     Route: 065
  5. TOPIRAMATE [Suspect]
     Indication: EPILEPSY
     Route: 048
  6. ASPEGIC 325 [Suspect]
     Indication: PREGNANCY
     Route: 048
     Dates: start: 20091224, end: 20091227
  7. FOLIC ACID [Concomitant]
     Dates: start: 20090401
  8. TOPIRAMATE [Suspect]
     Route: 048
     Dates: start: 19980101

REACTIONS (4)
  - PREMATURE LABOUR [None]
  - AURA [None]
  - LYME DISEASE [None]
  - MATERNAL EXPOSURE DURING PREGNANCY [None]
